FAERS Safety Report 25383537 (Version 1)
Quarter: 2025Q2

REPORT INFORMATION
  Report Type: Spontaneous
  Country: RO (occurrence: RO)
  Receive Date: 20250602
  Receipt Date: 20250602
  Transmission Date: 20250716
  Serious: Yes (Other)
  Sender: ACCORD
  Company Number: RO-EMA-DD-20250508-7482647-092440

PATIENT
  Age: 76 Year
  Sex: Female

DRUGS (4)
  1. APIXABAN [Interacting]
     Active Substance: APIXABAN
     Indication: Anticoagulant therapy
  2. ASPIRIN [Interacting]
     Active Substance: ASPIRIN
     Indication: Cerebrovascular accident prophylaxis
  3. HEPARIN CALCIUM [Interacting]
     Active Substance: HEPARIN CALCIUM
     Indication: Cerebrovascular accident prophylaxis
  4. ASPIRIN [Interacting]
     Active Substance: ASPIRIN
     Indication: Anticoagulant therapy

REACTIONS (5)
  - Contraindicated product administered [Unknown]
  - Haematoma [Unknown]
  - Aphasia [Recovered/Resolved]
  - Headache [Unknown]
  - Drug interaction [Unknown]
